FAERS Safety Report 8575681 (Version 2)
Quarter: 2014Q1

REPORT INFORMATION
  Report Type: Spontaneous
  Country: US (occurrence: None)
  Receive Date: 20120323
  Receipt Date: 20140306
  Transmission Date: 20141002
  Serious: Yes (Other)
  Sender: FDA-Public Use
  Company Number: 163-21880-11062924

PATIENT
  Age: 60 Year
  Sex: Female
  Weight: 46.27 kg

DRUGS (6)
  1. REVLIMID [Suspect]
     Indication: PLASMA CELL MYELOMA
     Dosage: 25 MG, 14 AND 14 D, PO
     Route: 048
     Dates: start: 20110609, end: 20110927
  2. VELCADE [Suspect]
     Indication: PLASMA CELL MYELOMA
     Dosage: 1 IN 2 WK, UNK
     Dates: start: 201110
  3. ASPIRIN (ACETYLSALICYLIC ACID) [Concomitant]
  4. DECADRON [Concomitant]
  5. ZOMETA (ZOLEDRONIC ACID) [Concomitant]
  6. FERREX (POLYSACCHARIDE-IRON COMPLEX) (UNKNOWN) [Concomitant]

REACTIONS (13)
  - Pyrexia [None]
  - Neutrophil count decreased [None]
  - Rosacea [None]
  - Contusion [None]
  - Pain in extremity [None]
  - Nausea [None]
  - Constipation [None]
  - Ageusia [None]
  - Fatigue [None]
  - Joint swelling [None]
  - Paraesthesia [None]
  - Hypoaesthesia [None]
  - Candida infection [None]
